FAERS Safety Report 19425347 (Version 1)
Quarter: 2021Q2

REPORT INFORMATION
  Report Type: Spontaneous
  Country: US (occurrence: US)
  Receive Date: 20210616
  Receipt Date: 20210616
  Transmission Date: 20210717
  Serious: No
  Sender: FDA-Public Use
  Company Number: US-ELI_LILLY_AND_COMPANY-US202106007581

PATIENT
  Sex: Female

DRUGS (1)
  1. TRULICITY [Suspect]
     Active Substance: DULAGLUTIDE
     Indication: PRODUCT USED FOR UNKNOWN INDICATION
     Dosage: 0.75 MG, UNKNOWN
     Route: 065

REACTIONS (8)
  - Flatulence [Unknown]
  - Gastric dilatation [Unknown]
  - Terminal insomnia [Unknown]
  - Dyspepsia [Unknown]
  - Nausea [Unknown]
  - Vomiting [Unknown]
  - Eructation [Unknown]
  - Abdominal discomfort [Unknown]
